FAERS Safety Report 12115838 (Version 1)
Quarter: 2016Q1

REPORT INFORMATION
  Report Type: Spontaneous
  Country: US (occurrence: US)
  Receive Date: 20160225
  Receipt Date: 20160225
  Transmission Date: 20160526
  Serious: No
  Sender: FDA-Public Use
  Company Number: US-GLAXOSMITHKLINE-US2016024740

PATIENT
  Age: 55 Year
  Sex: Female

DRUGS (9)
  1. BENLYSTA [Suspect]
     Active Substance: BELIMUMAB
     Indication: SYSTEMIC LUPUS ERYTHEMATOSUS
     Route: 042
     Dates: start: 201411
  2. DEXILANT [Concomitant]
     Active Substance: DEXLANSOPRAZOLE
  3. PREDNISONE. [Concomitant]
     Active Substance: PREDNISONE
  4. PROLIA [Concomitant]
     Active Substance: DENOSUMAB
  5. PLAQUENIL [Concomitant]
     Active Substance: HYDROXYCHLOROQUINE SULFATE
  6. PIROXICAM. [Concomitant]
     Active Substance: PIROXICAM
  7. BENLYSTA [Suspect]
     Active Substance: BELIMUMAB
     Indication: RHEUMATOID ARTHRITIS
  8. LEVOXYL [Concomitant]
     Active Substance: LEVOTHYROXINE SODIUM
  9. PAXIL [Concomitant]
     Active Substance: PAROXETINE HYDROCHLORIDE

REACTIONS (6)
  - Infection [Recovered/Resolved]
  - Drug dose omission [Unknown]
  - Swelling [Recovered/Resolved]
  - Pain [Recovering/Resolving]
  - Erythema [Recovered/Resolved]
  - Endodontic procedure [Recovered/Resolved]

NARRATIVE: CASE EVENT DATE: 20160126
